FAERS Safety Report 8774097 (Version 1)
Quarter: 2012Q4

REPORT INFORMATION
  Report Type: 
  Country: GB (occurrence: GB)
  Receive Date: 20120907
  Receipt Date: 20120907
  Transmission Date: 20130627
  Serious: Yes (Disabling)
  Sender: FDA-Public Use
  Company Number: GB-JNJFOC-20120902734

PATIENT
  Age: 77 Year
  Sex: Male
  Weight: 82 kg

DRUGS (5)
  1. XARELTO [Suspect]
     Indication: EMBOLISM VENOUS
     Route: 048
     Dates: start: 20120802, end: 20120804
  2. XARELTO [Suspect]
     Indication: DEEP VEIN THROMBOSIS
     Route: 048
     Dates: start: 20120802, end: 20120804
  3. RIVASTIGMINE [Concomitant]
     Indication: DEMENTIA
     Dates: start: 2008
  4. SINEMET [Concomitant]
     Indication: PARKINSON^S DISEASE
     Dates: start: 2000
  5. CLEXANE [Concomitant]
     Indication: DEEP VEIN THROMBOSIS
     Dates: start: 20120625

REACTIONS (1)
  - Hallucination [Recovering/Resolving]
